FAERS Safety Report 8833640 (Version 2)
Quarter: 2012Q4

REPORT INFORMATION
  Report Type: 
  Country: PL (occurrence: PL)
  Receive Date: 20121010
  Receipt Date: 20121213
  Transmission Date: 20130627
  Serious: Yes (Hospitalization, Other)
  Sender: FDA-Public Use
  Company Number: PL-ROCHE-1143313

PATIENT
  Age: 57 Year
  Sex: Male

DRUGS (1)
  1. LUCENTIS [Suspect]
     Indication: NEOVASCULARISATION
     Route: 050
     Dates: end: 20120905

REACTIONS (2)
  - Gastritis [Recovered/Resolved]
  - Gastrointestinal haemorrhage [Unknown]
